FAERS Safety Report 6357047-8 (Version None)
Quarter: 2009Q3

REPORT INFORMATION
  Report Type: 
  Country: None (occurrence: None)
  Receive Date: 20090915
  Receipt Date: 20090908
  Transmission Date: 20100115
  Serious: Yes (Other)
  Sender: FDA-Public Use
  Company Number: GB-GENENTECH-289686

PATIENT
  Age: 86 Year
  Sex: Male

DRUGS (1)
  1. AVASTIN [Suspect]
     Indication: CHOROIDAL NEOVASCULARISATION
     Dosage: 1.25 MG, UNK
     Route: 031

REACTIONS (1)
  - RETINAL HAEMORRHAGE [None]
